FAERS Safety Report 8559172-X (Version None)
Quarter: 2012Q3

REPORT INFORMATION
  Report Type: 
  Country: None (occurrence: None)
  Receive Date: 20120720
  Receipt Date: 20120709
  Transmission Date: 20120928
  Serious: Yes (Other)
  Sender: FDA-Public Use
  Company Number: 2012P1048791

PATIENT
  Age: 53 Year
  Sex: Male

DRUGS (4)
  1. ROPIVACAINE HYDROCHLORIDE [Concomitant]
  2. FENTANYL CITRATE [Concomitant]
  3. PROPOFOL [Concomitant]
  4. LIDOCAINE [Suspect]
     Indication: ANAESTHESIA
     Dosage: 20 ML; 5 ML

REACTIONS (2)
  - HEART RATE DECREASED [None]
  - ATRIOVENTRICULAR BLOCK COMPLETE [None]
